FAERS Safety Report 8962890 (Version 3)
Quarter: 2013Q1

REPORT INFORMATION
  Report Type: Spontaneous
  Country: US (occurrence: US)
  Receive Date: 20121213
  Receipt Date: 20130318
  Transmission Date: 20140127
  Serious: Yes (Death)
  Sender: FDA-Public Use
  Company Number: US-PFIZER INC-2012313082

PATIENT
  Age: 40 Year
  Sex: Male

DRUGS (1)
  1. VFEND [Suspect]
     Indication: STEM CELL TRANSPLANT
     Dosage: 200 MG, 2X/DAY
     Dates: start: 20121112

REACTIONS (2)
  - Pulmonary alveolar haemorrhage [Fatal]
  - Multi-organ failure [Fatal]
